FAERS Safety Report 19409076 (Version 1)
Quarter: 2021Q2

REPORT INFORMATION
  Report Type: Other
  Country: US (occurrence: US)
  Receive Date: 20210613
  Receipt Date: 20210613
  Transmission Date: 20210717
  Serious: Yes (Death, Hospitalization)
  Sender: FDA-Public Use
  Company Number: US-B.BRAUN MEDICAL INC.-2112664

PATIENT
  Sex: Female
  Weight: 2.46 kg

DRUGS (3)
  1. METHYLPREDNISOLONE. [Concomitant]
     Active Substance: METHYLPREDNISOLONE
     Route: 042
  2. DEXTROSE INJECTIONS USP 0264?7510?00 0264?7510?20 [Suspect]
     Active Substance: DEXTROSE
     Indication: HYPOGLYCAEMIA NEONATAL
  3. TREPROSTINIL. [Concomitant]
     Active Substance: TREPROSTINIL
     Route: 058

REACTIONS (1)
  - Drug ineffective [None]
